FAERS Safety Report 13371723 (Version 1)
Quarter: 2017Q1

REPORT INFORMATION
  Report Type: Report from Study
  Country: US (occurrence: US)
  Receive Date: 20170325
  Receipt Date: 20170325
  Transmission Date: 20170429
  Serious: Yes (Hospitalization, Other)
  Sender: FDA-Public Use
  Company Number: US-AMGEN-USASL2017043148

PATIENT
  Age: 47 Year
  Sex: Female

DRUGS (2)
  1. ENBREL [Suspect]
     Active Substance: ETANERCEPT
     Indication: PSORIATIC ARTHROPATHY
  2. ENBREL [Suspect]
     Active Substance: ETANERCEPT
     Indication: PSORIASIS
     Dosage: 50 MG, EVERY FOUR DAYS
     Route: 065
     Dates: start: 201701

REACTIONS (12)
  - Pruritus generalised [Unknown]
  - Inappropriate schedule of drug administration [Unknown]
  - Ulcer [Unknown]
  - Anaemia [Unknown]
  - Incorrect product storage [Unknown]
  - Haematochezia [Unknown]
  - Anal incontinence [Unknown]
  - Rash [Unknown]
  - Injection site pain [Unknown]
  - Paranasal sinus hypersecretion [Unknown]
  - Visual acuity reduced [Unknown]
  - Rhinorrhoea [Unknown]

NARRATIVE: CASE EVENT DATE: 2017
